FAERS Safety Report 4780848-4 (Version None)
Quarter: 2005Q3

REPORT INFORMATION
  Report Type: 
  Country: None (occurrence: None)
  Receive Date: 20050914
  Receipt Date: 20040802
  Transmission Date: 20060218
  Serious: Yes (Death)
  Sender: FDA-Public Use
  Company Number: 163-20785-04080096

PATIENT
  Age: 48 Year
  Sex: Male

DRUGS (2)
  1. THALOMID [Suspect]
     Indication: METASTASES TO LUNG
     Dosage: 100 MG, DAILY, ORAL;  DAILY, ORAL
     Route: 048
     Dates: end: 20040601
  2. THALOMID [Suspect]
     Indication: METASTASES TO LUNG
     Dosage: 100 MG, DAILY, ORAL;  DAILY, ORAL
     Route: 048
     Dates: start: 20040209

REACTIONS (3)
  - COLON CANCER [None]
  - DEATH [None]
  - DISEASE PROGRESSION [None]
